FAERS Safety Report 24046250 (Version 1)
Quarter: 2024Q3

REPORT INFORMATION
  Report Type: Spontaneous
  Country: CN (occurrence: CN)
  Receive Date: 20240703
  Receipt Date: 20240703
  Transmission Date: 20241017
  Serious: Yes (Life-Threatening, Other)
  Sender: PFIZER
  Company Number: CN-PFIZER INC-PV202400085618

PATIENT
  Age: 4 Year
  Sex: Female
  Weight: 17 kg

DRUGS (2)
  1. CYTARABINE [Suspect]
     Active Substance: CYTARABINE
     Indication: Chemotherapy
     Dosage: 1800 MG, 2X/DAY
     Route: 041
     Dates: start: 20240614, end: 20240615
  2. SODIUM CHLORIDE [Concomitant]
     Active Substance: SODIUM CHLORIDE
     Indication: Vehicle solution use
     Dosage: 250 ML, 2X/DAY
     Route: 041
     Dates: start: 20240614, end: 20240615

REACTIONS (7)
  - Blood pressure decreased [Recovered/Resolved]
  - Face oedema [Recovering/Resolving]
  - Pyrexia [Recovering/Resolving]
  - Respiratory rate increased [Recovering/Resolving]
  - Capillary nail refill test abnormal [Recovering/Resolving]
  - Feeling cold [Recovering/Resolving]
  - Cytarabine syndrome [Recovering/Resolving]

NARRATIVE: CASE EVENT DATE: 20240615
